FAERS Safety Report 8831752 (Version 7)
Quarter: 2013Q4

REPORT INFORMATION
  Report Type: Report from Study
  Country: JP (occurrence: JP)
  Receive Date: 20121009
  Receipt Date: 20131119
  Transmission Date: 20140711
  Serious: Yes (Hospitalization)
  Sender: FDA-Public Use
  Company Number: JP-VERTEX PHARMACEUTICAL INC.-2012-022398

PATIENT
  Age: 59 Year
  Sex: Female

DRUGS (30)
  1. VX-950 (TELAPREVIR) [Suspect]
     Indication: CHRONIC HEPATITIS C
     Dosage: 1500 MG, QD
     Route: 048
     Dates: start: 20120905, end: 20120909
  2. VX-950 (TELAPREVIR) [Suspect]
     Dosage: 2250 MG, QD
     Route: 048
     Dates: start: 20120916, end: 20120927
  3. VX-950 (TELAPREVIR) [Suspect]
     Dosage: 1250 MG, QD
     Route: 048
     Dates: start: 20120930, end: 20121002
  4. VX-950 (TELAPREVIR) [Suspect]
     Dosage: 1000 MG, QD
     Route: 048
     Dates: start: 20121003, end: 20121128
  5. PEGINTRON [Suspect]
     Indication: CHRONIC HEPATITIS C
     Dosage: 1.5 ?G/KG, QW
     Route: 058
     Dates: start: 20120905, end: 20120905
  6. PEGINTRON [Suspect]
     Dosage: 0.78 ?G/KG, QW
     Route: 058
     Dates: start: 20120912, end: 20120912
  7. PEGINTRON [Suspect]
     Dosage: 1.25 ?G/KG, QW
     Route: 058
     Dates: start: 20120919, end: 20120919
  8. PEGINTRON [Suspect]
     Dosage: 0.78 ?G/KG, QW
     Route: 058
     Dates: start: 20121003
  9. PEGINTRON [Suspect]
     Dosage: 25 ?G, QW
     Route: 058
     Dates: start: 20121018, end: 20121018
  10. PEGINTRON [Suspect]
     Dosage: 50 ?G, QW
     Route: 058
     Dates: start: 20121025, end: 20121025
  11. PEGINTRON [Suspect]
     Dosage: 100 ?G, QW
     Route: 058
     Dates: start: 20121101
  12. PEGINTRON [Suspect]
     Dosage: 1.5 ?G/KG, QW
     Route: 058
     Dates: end: 20130214
  13. REBETOL [Suspect]
     Indication: CHRONIC HEPATITIS C
     Dosage: 800 MG, QD
     Route: 048
     Dates: start: 20120905, end: 20120927
  14. REBETOL [Suspect]
     Dosage: 400 MG, QD
     Route: 048
     Dates: start: 20120930, end: 20121003
  15. REBETOL [Suspect]
     Dosage: 200 MG, QD
     Route: 048
     Dates: start: 20121004, end: 20121009
  16. REBETOL [Suspect]
     Dosage: 400 MG, QD
     Route: 048
     Dates: start: 20121010, end: 20121107
  17. REBETOL [Suspect]
     Dosage: 600 MG, QD
     Route: 048
     Dates: start: 20121108, end: 20121219
  18. REBETOL [Suspect]
     Dosage: 800 MG, QD
     Route: 048
     Dates: start: 20121220, end: 20130123
  19. REBETOL [Suspect]
     Dosage: 600 MG, QD
     Route: 048
     Dates: start: 20130124, end: 20130221
  20. SOLANAX [Suspect]
     Indication: PROPHYLAXIS
     Dosage: 1.2 MG, QD
     Route: 048
     Dates: start: 20120921, end: 20120926
  21. NESINA [Concomitant]
     Dosage: 25 MG, QD
     Route: 048
     Dates: start: 20120904, end: 20130221
  22. ALESION [Concomitant]
     Dosage: 20 MG, QD
     Route: 048
     Dates: start: 20120906, end: 20121009
  23. LOXONIN [Concomitant]
     Dosage: 60 MG, QD
     Route: 048
     Dates: start: 20120906, end: 20121009
  24. TAKEPRON [Concomitant]
     Dosage: 15 MG, QD
     Route: 048
     Dates: start: 20120909, end: 20130221
  25. PREDONINE [Concomitant]
     Dosage: 5 MG, QD
     Route: 048
     Dates: start: 20121018, end: 20121212
  26. GASMOTIN [Concomitant]
     Dosage: 15 MG, QD
     Route: 048
     Dates: start: 20120904, end: 20130221
  27. ZYLORIC [Concomitant]
     Dosage: 100 MG, QD
     Route: 048
     Dates: start: 20121018, end: 20130221
  28. NAUZELIN [Concomitant]
     Dosage: 30 MG, UNK
     Route: 048
     Dates: start: 20120928, end: 20130221
  29. MAGNESIUM OXIDE [Concomitant]
     Dosage: 990 MG, QD
     Route: 048
     Dates: start: 20120927
  30. MAGNESIUM OXIDE [Concomitant]
     Dosage: 1 G, QD
     Route: 048
     Dates: end: 20130221

REACTIONS (3)
  - Anaemia [Recovered/Resolved]
  - Platelet count decreased [Recovered/Resolved]
  - Altered state of consciousness [Recovered/Resolved]
